FAERS Safety Report 20164665 (Version 1)
Quarter: 2021Q4

REPORT INFORMATION
  Report Type: Spontaneous
  Country: US (occurrence: None)
  Receive Date: 20211208
  Receipt Date: 20211208
  Transmission Date: 20220303
  Serious: Yes (Death)
  Sender: FDA-Public Use
  Company Number: None

PATIENT
  Age: 60 Year
  Sex: Female

DRUGS (2)
  1. MYCOPHENOLIC ACID [Suspect]
     Active Substance: MYCOPHENOLIC ACID
     Indication: Renal transplant
     Dosage: FREQUENCY : TWICE A DAY;?OTHER ROUTE : 2AM, 1 PM PO;?
     Route: 050
     Dates: start: 20130430
  2. TACROLIMUS [Suspect]
     Active Substance: TACROLIMUS
     Dosage: FREQUENCY : TWICE A DAY;?OTHER ROUTE : 2 AM, 1 PM PO ;?
     Route: 050
     Dates: start: 20130430

REACTIONS (2)
  - Death [None]
  - Gun shot wound [None]
